FAERS Safety Report 10236662 (Version 1)
Quarter: 2014Q2

REPORT INFORMATION
  Report Type: Spontaneous
  Country: US (occurrence: US)
  Receive Date: 20140613
  Receipt Date: 20140613
  Transmission Date: 20141212
  Serious: Yes (Other)
  Sender: FDA-Public Use
  Company Number: US-BAXTER-2014BAX029908

PATIENT
  Sex: 0

DRUGS (2)
  1. TISSEEL VH S/D [Suspect]
     Indication: LYMPHOCELE
  2. TISSEEL VH S/D [Suspect]
     Indication: OFF LABEL USE

REACTIONS (1)
  - Pelvic fluid collection [Unknown]
